FAERS Safety Report 7490699-8 (Version None)
Quarter: 2011Q2

REPORT INFORMATION
  Report Type: 
  Country: None (occurrence: None)
  Receive Date: 20110519
  Receipt Date: 20110511
  Transmission Date: 20111010
  Serious: Yes (Hospitalization)
  Sender: FDA-Public Use
  Company Number: FR-SANOFI-AVENTIS-2011SA029964

PATIENT
  Age: 77 Year
  Sex: Male

DRUGS (6)
  1. LOVENOX [Concomitant]
     Route: 058
     Dates: start: 20110125, end: 20110201
  2. ASPIRIN [Concomitant]
     Route: 048
     Dates: end: 20110101
  3. KAYEXALATE [Suspect]
     Indication: HYPERKALAEMIA
     Route: 048
     Dates: start: 20110201, end: 20110207
  4. ARIXTRA [Suspect]
     Indication: DEEP VEIN THROMBOSIS
     Dosage: DOSE:1 UNIT(S)
     Route: 058
     Dates: start: 20110201, end: 20110207
  5. NEBIVOLOL HCL [Concomitant]
     Route: 048
  6. OLMESARTAN MEDOXOMIL [Concomitant]
     Route: 048

REACTIONS (1)
  - HAEMARTHROSIS [None]
